FAERS Safety Report 4684666-7 (Version None)
Quarter: 2005Q2

REPORT INFORMATION
  Report Type: 
  Country: None (occurrence: None)
  Receive Date: 20050531
  Receipt Date: 20050113
  Transmission Date: 20051028
  Serious: Yes (Hospitalization, Other)
  Sender: FDA-Public Use
  Company Number: US_0501110077

PATIENT
  Age: 56 Year

DRUGS (34)
  1. ZYPREXA [Suspect]
     Indication: SCHIZOPHRENIA
     Dosage: 5 MG
     Dates: start: 19991230, end: 20040716
  2. PREMARIN [Concomitant]
  3. BENZTROPINE [Concomitant]
  4. TRIAMTERENE AND HYDROCHLOROTHIAZIDE [Concomitant]
  5. NAPRELAN ^ELAN^ (NAPROXEN SODIUM) [Concomitant]
  6. DETROL LA [Concomitant]
  7. ETODOLAC [Concomitant]
  8. AVONEX (INTERFERON BETA-1A 01697201) [Concomitant]
  9. CATAPRES-TTS-1 [Concomitant]
  10. DARVOCET-N 100 [Concomitant]
  11. IBUPROFEN [Concomitant]
  12. ROBITUSSIN (GUAIFENESIN L.A.) [Concomitant]
  13. VANCOMYCIN [Concomitant]
  14. METROCLOPRAMIDE (METOCLOPRAMIDE HYDROCHLORIDE) [Concomitant]
  15. NICODERM [Concomitant]
  16. POTASSIUM CHLORIDE [Concomitant]
  17. ENOXAPARIN SODIUM [Concomitant]
  18. DIAZEPAM [Concomitant]
  19. DOCUSATE SODIUM [Concomitant]
  20. MIRALAX [Concomitant]
  21. FERROUS SULFATE TAB [Concomitant]
  22. BACLOFEN [Concomitant]
  23. LLPRESSOR (METOPROLOL TARTRATE) [Concomitant]
  24. PRINIVIL [Concomitant]
  25. PROTONIX [Concomitant]
  26. ACETAMINOPHEN [Concomitant]
  27. SORBITOL [Concomitant]
  28. MILK OF MAGNESIA [Concomitant]
  29. MULTI-VITAMIN [Concomitant]
  30. ENFLUENZA VACCINE [Concomitant]
  31. CAPTOPRIL [Concomitant]
  32. PENICILLIN-VK [Concomitant]
  33. LEVAQUIN [Concomitant]
  34. TORADOL [Concomitant]

REACTIONS (8)
  - CHOLELITHIASIS [None]
  - DIABETES MELLITUS NON-INSULIN-DEPENDENT [None]
  - GASTROOESOPHAGEAL REFLUX DISEASE [None]
  - HYPERGLYCAEMIA [None]
  - HYPERTENSION [None]
  - ILEUS [None]
  - PANCREATITIS [None]
  - WEIGHT INCREASED [None]
